FAERS Safety Report 19239268 (Version 2)
Quarter: 2021Q3

REPORT INFORMATION
  Report Type: Spontaneous
  Country: US (occurrence: US)
  Receive Date: 20210511
  Receipt Date: 20210705
  Transmission Date: 20211014
  Serious: No
  Sender: FDA-Public Use
  Company Number: US-ORGANON-O2105USA000529

PATIENT
  Age: 19 Year
  Sex: Female
  Weight: 63.95 kg

DRUGS (2)
  1. NEXPLANON [Suspect]
     Active Substance: ETONOGESTREL
     Indication: CONTRACEPTION
     Dosage: 68MG EVERY 3 YEARS, LEFT UPPER ARM (DOMINANT ARM); OVER THE TRICEPS MUSCLE APPROXIMATELY 7 CM FROM T
     Route: 059
     Dates: start: 20200805, end: 20210506
  2. NEXPLANON [Suspect]
     Active Substance: ETONOGESTREL
     Dosage: 1 DOSAGE FORM
     Route: 059
     Dates: start: 20210506

REACTIONS (3)
  - Polymenorrhoea [Recovered/Resolved]
  - Device placement issue [Recovered/Resolved]
  - Device breakage [Recovered/Resolved]

NARRATIVE: CASE EVENT DATE: 20200805
